FAERS Safety Report 17057131 (Version 1)
Quarter: 2019Q4

REPORT INFORMATION
  Report Type: Spontaneous
  Country: CA (occurrence: CA)
  Receive Date: 20191121
  Receipt Date: 20191121
  Transmission Date: 20200122
  Serious: Yes (Hospitalization)
  Sender: FDA-Public Use
  Company Number: CA-ACCORD-161077

PATIENT
  Age: 47 Year
  Sex: Female

DRUGS (24)
  1. TOCOPHEROL [Concomitant]
     Active Substance: TOCOPHEROL
  2. RENAVITE [Concomitant]
     Active Substance: ASCORBIC ACID\BIOTIN\CALCIUM PANTOTHENATE\CYANOCOBALAMIN\FOLIC ACID\NIACINAMIDE\PYRIDOXINE HYDROCHLORIDE\RIBOFLAVIN\THIAMINE MONONITRATE
  3. ATENOLOL/ATENOLOL HYDROCHLORIDE [Concomitant]
  4. FOLIC ACID. [Concomitant]
     Active Substance: FOLIC ACID
  5. HYDROCORTISONE. [Concomitant]
     Active Substance: HYDROCORTISONE
  6. CLOBAZAM. [Concomitant]
     Active Substance: CLOBAZAM
  7. CLOBEX [Concomitant]
     Active Substance: CLOBETASOL PROPIONATE
  8. GAVISCON [Concomitant]
     Active Substance: ALUMINUM HYDROXIDE\MAGNESIUM CARBONATE
  9. BETAMETHASONE. [Concomitant]
     Active Substance: BETAMETHASONE
  10. CICLOSPORIN [Concomitant]
     Active Substance: CYCLOSPORINE
  11. METHOTREXATE. [Suspect]
     Active Substance: METHOTREXATE
     Indication: DERMATITIS ATOPIC
     Dosage: 1 EVERY 1 WEEK(S)
     Route: 048
  12. DOMPERIDONE [Concomitant]
     Active Substance: DOMPERIDONE
  13. NIFEDIPINE. [Concomitant]
     Active Substance: NIFEDIPINE
  14. CALCIUM CARBONATE. [Concomitant]
     Active Substance: CALCIUM CARBONATE
  15. ROSUVASTATIN/ROSUVASTATIN CALCIUM [Concomitant]
  16. VENTOLIN [Concomitant]
     Active Substance: ALBUTEROL SULFATE
  17. VOLTAREN [Concomitant]
     Active Substance: DICLOFENAC SODIUM
  18. ARANESP [Concomitant]
     Active Substance: DARBEPOETIN ALFA
     Dosage: SOLUTION INTRAVENOUS
  19. DERMA SMOOTHE [Concomitant]
     Dosage: EMULSION, STRENGTH: 0.01% LIQ
  20. DEXILANT [Concomitant]
     Active Substance: DEXLANSOPRAZOLE
  21. ONE ALPHA [Concomitant]
     Active Substance: ALFACALCIDOL
     Dosage: STRENGTH: 0.25 MCG
  22. PREDNISONE. [Concomitant]
     Active Substance: PREDNISONE
  23. PROLIA [Concomitant]
     Active Substance: DENOSUMAB
     Dosage: SOLUTION SUBCUTANEOUS
  24. ATIVAN [Concomitant]
     Active Substance: LORAZEPAM

REACTIONS (11)
  - Epidermal necrosis [Recovering/Resolving]
  - Rash [Recovering/Resolving]
  - Skin abrasion [Recovering/Resolving]
  - Herpes simplex [Recovering/Resolving]
  - Mouth ulceration [Recovering/Resolving]
  - Odynophagia [Recovering/Resolving]
  - Pallor [Recovering/Resolving]
  - Skin exfoliation [Recovering/Resolving]
  - Pain [Recovering/Resolving]
  - Dysphagia [Recovering/Resolving]
  - Discharge [Recovering/Resolving]
